FAERS Safety Report 5549821-2 (Version None)
Quarter: 2007Q4

REPORT INFORMATION
  Report Type: 
  Country: None (occurrence: None)
  Receive Date: 20071212
  Receipt Date: 20071205
  Transmission Date: 20080405
  Serious: Yes (Death)
  Sender: FDA-Public Use
  Company Number: FR-BRISTOL-MYERS SQUIBB COMPANY-14010763

PATIENT
  Age: 76 Year
  Sex: Female

DRUGS (4)
  1. GLUCOPHAGE [Suspect]
     Route: 048
     Dates: end: 20071027
  2. AMARYL [Concomitant]
     Dosage: DOSAGEFORM-TABLET
     Route: 048
     Dates: end: 20071027
  3. BISOPROLOL FUMARATE [Concomitant]
     Route: 048
  4. AMLOR [Concomitant]
     Dosage: 1 DOSAGE FORM=5MG
     Route: 048
     Dates: end: 20071027

REACTIONS (2)
  - LACTIC ACIDOSIS [None]
  - MULTI-ORGAN FAILURE [None]
